FAERS Safety Report 23672677 (Version 1)
Quarter: 2024Q1

REPORT INFORMATION
  Report Type: Spontaneous
  Country: US (occurrence: None)
  Receive Date: 20240325
  Receipt Date: 20240325
  Transmission Date: 20240410
  Serious: No
  Sender: FDA-Public Use
  Company Number: None

PATIENT
  Sex: Female

DRUGS (11)
  1. INFLECTRA [Suspect]
     Active Substance: INFLIXIMAB-DYYB
     Indication: Crohn^s disease
     Dosage: FREQ: INFUSE 8 VIALS (800 MG TOTAL) INTO A VENOUS CATHETER EVERY 8 WEEKS?
     Dates: start: 20231230
  2. DIPHENHYDRAMINE HCL [Concomitant]
  3. DIPHENHYDRAMINE HYDROCHLO [Concomitant]
  4. EPINEPHRINE [Concomitant]
  5. MONOJECT PHARMA GRADE FLU [Concomitant]
  6. NORMAL SALINE FLUSH [Concomitant]
  7. NORMAL SALINE I.V. FLUSH [Concomitant]
  8. SALINE FLUSH [Concomitant]
  9. SODIUM CHLORIDE [Concomitant]
  10. SODIUM CHLORIDE FLUSH [Concomitant]
  11. SOLU-MEDROL [Concomitant]

REACTIONS (1)
  - Pleural effusion [None]
